FAERS Safety Report 16880054 (Version 1)
Quarter: 2019Q4

REPORT INFORMATION
  Report Type: Spontaneous
  Country: SE (occurrence: SE)
  Receive Date: 20191003
  Receipt Date: 20191003
  Transmission Date: 20200122
  Serious: Yes (Hospitalization)
  Sender: FDA-Public Use
  Company Number: SE-ACCORD-156321

PATIENT
  Sex: Female

DRUGS (11)
  1. ARIPIPRAZOLE. [Suspect]
     Active Substance: ARIPIPRAZOLE
     Dosage: UNCLEAR AMOUNT
     Route: 048
     Dates: start: 20181014, end: 20181014
  2. PARGITAN [Suspect]
     Active Substance: TRIHEXYPHENIDYL HYDROCHLORIDE
     Dosage: UNCLEAR AMOUNT
     Route: 048
     Dates: start: 20181014, end: 20181014
  3. OLANZAPINE. [Suspect]
     Active Substance: OLANZAPINE
     Dosage: 1 PIECE OF 5 MG
     Route: 048
     Dates: start: 20181014, end: 20181014
  4. LAMOTRIGINE. [Suspect]
     Active Substance: LAMOTRIGINE
     Dosage: UNCLEAR AMOUNT
     Route: 048
     Dates: start: 20181014, end: 20181014
  5. STESOLID [Suspect]
     Active Substance: DIAZEPAM
     Dosage: 4 STESOLID OF 20 MG
     Route: 048
     Dates: start: 20181014, end: 20181014
  6. NALTREXONE/NALTREXONE HYDROCHLORIDE [Suspect]
     Active Substance: NALTREXONE
     Dosage: UNCLEAR AMOUNT
     Route: 048
     Dates: start: 20181014, end: 20181014
  7. SERTRALINE [Suspect]
     Active Substance: SERTRALINE HYDROCHLORIDE
     Dosage: UNCLEAR AMOUNT
     Route: 048
     Dates: start: 20181014, end: 20181014
  8. MELATONIN [Suspect]
     Active Substance: MELATONIN
     Dosage: UNCLEAR AMOUNT
     Route: 048
     Dates: start: 20181014, end: 20181014
  9. LERGIGAN (PROMETHAZINE HYDROCHLORIDE) [Suspect]
     Active Substance: PROMETHAZINE HYDROCHLORIDE
     Dosage: 36 LERGIGAN OF 25 MG
     Route: 048
     Dates: start: 20181014, end: 20181014
  10. CISORDINOL [Suspect]
     Active Substance: ZUCLOPENTHIXOL
     Dosage: UNCLEAR AMOUNT
     Route: 048
     Dates: start: 20181014, end: 20181014
  11. ALIMEMAZINE/ALIMEMAZINE TARTRATE [Suspect]
     Active Substance: TRIMEPRAZINE
     Dosage: UNCLEAR AMOUNT
     Route: 048
     Dates: start: 20181014, end: 20181014

REACTIONS (4)
  - Intentional overdose [Unknown]
  - Intentional self-injury [Unknown]
  - Fatigue [Unknown]
  - Depressed level of consciousness [Unknown]

NARRATIVE: CASE EVENT DATE: 201810
